FAERS Safety Report 5368858-X (Version None)
Quarter: 2007Q2

REPORT INFORMATION
  Report Type: 
  Country: None (occurrence: None)
  Receive Date: 20070625
  Receipt Date: 20070118
  Transmission Date: 20071010
  Serious: No
  Sender: FDA-Public Use
  Company Number: US-ASTRAZENECA-2006UW21713

PATIENT
  Age: 87 Year
  Sex: Female
  Weight: 54 kg

DRUGS (5)
  1. CRESTOR [Suspect]
     Indication: BLOOD CHOLESTEROL INCREASED
     Route: 048
     Dates: start: 20070101
  2. PLAVIX [Concomitant]
  3. COREG [Concomitant]
  4. LASIX [Concomitant]
  5. DIGOXIN [Concomitant]

REACTIONS (3)
  - ANXIETY [None]
  - CONSTIPATION [None]
  - NIGHTMARE [None]
